FAERS Safety Report 12968377 (Version 1)
Quarter: 2016Q4

REPORT INFORMATION
  Report Type: Spontaneous
  Country: US (occurrence: US)
  Receive Date: 20161120
  Receipt Date: 20161120
  Transmission Date: 20170207
  Serious: No
  Sender: FDA-Public Use
  Company Number: None

PATIENT
  Sex: Female

DRUGS (1)
  1. HARVONI [Suspect]
     Active Substance: LEDIPASVIR\SOFOSBUVIR
     Route: 048

REACTIONS (7)
  - Joint swelling [None]
  - Oedema peripheral [None]
  - Swelling face [None]
  - Cough [None]
  - Pharyngeal oedema [None]
  - Eye swelling [None]
  - Peripheral swelling [None]
